FAERS Safety Report 8921722 (Version 2)
Quarter: 2012Q4

REPORT INFORMATION
  Report Type: 
  Country: JP (occurrence: JP)
  Receive Date: 20121122
  Receipt Date: 20121217
  Transmission Date: 20130627
  Serious: Yes (Hospitalization)
  Sender: FDA-Public Use
  Company Number: JP-AMGEN-JPNSP2012074719

PATIENT
  Age: 48 Year
  Sex: Female

DRUGS (4)
  1. VECTIBIX [Suspect]
     Indication: COLON CANCER
     Dosage: UNK
     Route: 041
  2. IRINOTECAN HYDROCHLORIDE [Suspect]
     Indication: COLON CANCER
     Dosage: 150 mg/m2, q2wk
     Route: 041
  3. FLUOROURACIL [Concomitant]
     Indication: COLON CANCER
     Dosage: UNK
     Route: 041
  4. CALCIUM LEVOFOLINATE [Concomitant]
     Indication: COLON CANCER
     Dosage: UNK
     Route: 041

REACTIONS (2)
  - White blood cell count decreased [Unknown]
  - Neutrophil count decreased [Unknown]
